FAERS Safety Report 8569210-6 (Version None)
Quarter: 2012Q3

REPORT INFORMATION
  Report Type: 
  Country: None (occurrence: None)
  Receive Date: 20120803
  Receipt Date: 20120617
  Transmission Date: 20120928
  Serious: No
  Sender: FDA-Public Use
  Company Number: US-ABBOTT-12P-163-0946851-00

PATIENT
  Sex: Male
  Weight: 99.88 kg

DRUGS (2)
  1. ASPIRIN [Concomitant]
     Indication: PRODUCT USED FOR UNKNOWN INDICATION
  2. NIASPAN [Suspect]
     Indication: BLOOD TRIGLYCERIDES INCREASED
     Dosage: 500MG AT HS
     Dates: start: 20120609

REACTIONS (3)
  - FLUSHING [None]
  - PRURITUS GENERALISED [None]
  - GENERALISED ERYTHEMA [None]
